FAERS Safety Report 17204431 (Version 1)
Quarter: 2019Q4

REPORT INFORMATION
  Report Type: Spontaneous
  Country: US (occurrence: US)
  Receive Date: 20191226
  Receipt Date: 20191226
  Transmission Date: 20200122
  Serious: No
  Sender: FDA-Public Use
  Company Number: US-ACTELION-A-US2019-199771

PATIENT
  Sex: Female
  Weight: 123.36 kg

DRUGS (3)
  1. OPSUMIT [Concomitant]
     Active Substance: MACITENTAN
  2. ADEMPAS [Concomitant]
     Active Substance: RIOCIGUAT
  3. UPTRAVI [Suspect]
     Active Substance: SELEXIPAG
     Indication: PULMONARY HYPERTENSION
     Dosage: 200 MCG, BID
     Route: 048

REACTIONS (3)
  - Cough [Unknown]
  - Pain [Unknown]
  - Influenza like illness [Unknown]
